FAERS Safety Report 9491176 (Version 1)
Quarter: 2013Q3

REPORT INFORMATION
  Report Type: Spontaneous
  Country: US (occurrence: US)
  Receive Date: 20130830
  Receipt Date: 20130830
  Transmission Date: 20140515
  Serious: Yes (Disabling)
  Sender: FDA-Public Use
  Company Number: US-ROCHE-1267276

PATIENT
  Age: 48 Year
  Sex: Female
  Weight: 82.63 kg

DRUGS (9)
  1. VALIUM [Suspect]
     Indication: ANXIETY
     Route: 065
  2. LYRICA [Suspect]
     Indication: NEUROPATHY PERIPHERAL
     Route: 065
     Dates: start: 2011
  3. NEURONTIN [Suspect]
     Indication: PRODUCT USED FOR UNKNOWN INDICATION
     Route: 065
     Dates: start: 201011, end: 201012
  4. VITAMIN A [Concomitant]
     Indication: EATING DISORDER
  5. VITAMIN B12 [Concomitant]
     Indication: EATING DISORDER
  6. VITAMIN E [Concomitant]
     Indication: EATING DISORDER
  7. VITAMIN C [Concomitant]
     Indication: EATING DISORDER
  8. VITAMIN B6 [Concomitant]
     Indication: EATING DISORDER
  9. ULTRAM [Concomitant]
     Route: 048

REACTIONS (8)
  - Somnolence [Not Recovered/Not Resolved]
  - Skin disorder [Unknown]
  - Pruritus generalised [Unknown]
  - Erythema [Unknown]
  - Fall [Unknown]
  - Loss of consciousness [Unknown]
  - Headache [Unknown]
  - Acne [Unknown]
